FAERS Safety Report 15436529 (Version 1)
Quarter: 2018Q3

REPORT INFORMATION
  Report Type: Spontaneous
  Country: US (occurrence: US)
  Receive Date: 20180927
  Receipt Date: 20180927
  Transmission Date: 20181010
  Serious: Yes (Other)
  Sender: FDA-Public Use
  Company Number: US-PFIZER INC-2018385009

PATIENT
  Age: 61 Year
  Sex: Male
  Weight: 187 kg

DRUGS (1)
  1. LYRICA [Suspect]
     Active Substance: PREGABALIN
     Indication: NEURALGIA
     Dosage: 150 MG, 2X/DAY (150 MG, CAPSULE, ORALLY TWO A DAY)
     Route: 048

REACTIONS (1)
  - Spinal disorder [Unknown]
